FAERS Safety Report 9004659 (Version 1)
Quarter: 2013Q1

REPORT INFORMATION
  Report Type: Spontaneous
  Country: US (occurrence: None)
  Receive Date: 20130102
  Receipt Date: 20130102
  Transmission Date: 20140127
  Serious: Yes (Other)
  Sender: FDA-Public Use
  Company Number: None

PATIENT
  Age: 28 Year
  Sex: Female

DRUGS (1)
  1. CRINONE [Suspect]
     Dosage: 1 SUPP  DAILY  VAG
     Route: 067
     Dates: start: 20121218, end: 20121231

REACTIONS (6)
  - Metrorrhagia [None]
  - Maternal exposure timing unspecified [None]
  - Cervix disorder [None]
  - Application site irritation [None]
  - Vaginal discharge [None]
  - Product solubility abnormal [None]
